FAERS Safety Report 25149789 (Version 4)
Quarter: 2025Q4

REPORT INFORMATION
  Report Type: Spontaneous
  Country: EU (occurrence: EU)
  Receive Date: 20250402
  Receipt Date: 20251003
  Transmission Date: 20260118
  Serious: Yes (Other)
  Sender: ALEXION PHARMACEUTICALS
  Company Number: EU-SERVIER-S25003264

PATIENT
  Age: 54 Year
  Sex: Female

DRUGS (8)
  1. DAPAGLIFLOZIN [Interacting]
     Active Substance: DAPAGLIFLOZIN
     Indication: Product used for unknown indication
     Dosage: UNK
     Route: 065
  2. INDAPAMIDE\PERINDOPRIL [Interacting]
     Active Substance: INDAPAMIDE\PERINDOPRIL
     Indication: Hypertension
     Dosage: 1 DF, QD IN THE MORNING
     Route: 065
     Dates: end: 2014
  3. PERINDOPRIL ARGININE [Interacting]
     Active Substance: PERINDOPRIL ARGININE
     Indication: Hypertension
     Dosage: 1 DF, QD IN THE EVENING
     Route: 065
     Dates: end: 2014
  4. INDAPAMIDE [Interacting]
     Active Substance: INDAPAMIDE
     Indication: Hypertension
     Dosage: 1 DF, QD IN THE MORNING
     Route: 065
     Dates: start: 2014, end: 202306
  5. BISOPROLOL FUMARATE [Concomitant]
     Active Substance: BISOPROLOL FUMARATE
     Indication: Hypertension
     Dosage: 5 MG, QD THE MORNING
     Route: 065
  6. AMLODIPINE BESYLATE [Concomitant]
     Active Substance: AMLODIPINE BESYLATE
     Indication: Hypertension
     Dosage: 5 MG, QD IN THE EVENING
     Route: 065
  7. TELMISARTAN [Concomitant]
     Active Substance: TELMISARTAN
     Indication: Hypertension
     Dosage: TELMISARTAN 40 BID.
     Route: 065
  8. DOXAZOSIN MESYLATE [Concomitant]
     Active Substance: DOXAZOSIN MESYLATE
     Indication: Hypertension
     Route: 065

REACTIONS (4)
  - Hypokalaemia [Recovered/Resolved]
  - Cough [Recovered/Resolved]
  - Drug interaction [Recovered/Resolved]
  - Product use issue [Recovered/Resolved]
